FAERS Safety Report 8367006-1 (Version None)
Quarter: 2012Q2

REPORT INFORMATION
  Report Type: 
  Country: None (occurrence: None)
  Receive Date: 20120515
  Receipt Date: 20120515
  Transmission Date: 20120825
  Serious: No
  Sender: FDA-Public Use
  Company Number: None

PATIENT
  Age: 58 Year
  Sex: Female

DRUGS (2)
  1. NITROFURANTOIN [Concomitant]
  2. MACRODANTIN [Suspect]
     Dates: start: 20060101, end: 20100101

REACTIONS (10)
  - VARICES OESOPHAGEAL [None]
  - AUTOIMMUNE HEPATITIS [None]
  - HEPATIC NEOPLASM [None]
  - CHRONIC OBSTRUCTIVE PULMONARY DISEASE [None]
  - PORTAL HYPERTENSION [None]
  - SPLENOMEGALY [None]
  - LIVER INJURY [None]
  - HEPATIC NECROSIS [None]
  - UPPER RESPIRATORY TRACT INFECTION [None]
  - MENTAL STATUS CHANGES [None]
